FAERS Safety Report 14071111 (Version 2)
Quarter: 2017Q4

REPORT INFORMATION
  Report Type: Spontaneous
  Country: US (occurrence: US)
  Receive Date: 20171010
  Receipt Date: 20171121
  Transmission Date: 20180321
  Serious: No
  Sender: FDA-Public Use
  Company Number: US-JNJFOC-20170928715

PATIENT
  Age: 86 Year
  Sex: Male

DRUGS (27)
  1. GLUCOSAMINE [Concomitant]
     Active Substance: GLUCOSAMINE
  2. BACTRIM [Concomitant]
     Active Substance: SULFAMETHOXAZOLE\TRIMETHOPRIM
     Indication: CHRONIC LYMPHOCYTIC LEUKAEMIA
     Dosage: 800-160 MG, TAKE 1 TABLET BY MOUTH ON MONDAY, WEDNESDAY AND FRIDAY
     Route: 048
     Dates: start: 20150205
  3. FOLIC ACID. [Concomitant]
     Active Substance: FOLIC ACID
     Indication: VITAMIN B12 DEFICIENCY
     Route: 048
     Dates: start: 20140811
  4. CYANOCOBALAMIN. [Concomitant]
     Active Substance: CYANOCOBALAMIN
     Indication: VITAMIN B12 DEFICIENCY
     Dosage: 1000 MCG, UNK
     Route: 048
     Dates: start: 20140811
  5. ALLOPURINOL. [Concomitant]
     Active Substance: ALLOPURINOL
     Indication: HYPOGAMMAGLOBULINAEMIA
     Route: 048
     Dates: start: 20170315
  6. ALLOPURINOL. [Concomitant]
     Active Substance: ALLOPURINOL
     Indication: CHRONIC LYMPHOCYTIC LEUKAEMIA
     Route: 048
     Dates: start: 20170315
  7. BACTRIM [Concomitant]
     Active Substance: SULFAMETHOXAZOLE\TRIMETHOPRIM
     Indication: ANAEMIA
     Dosage: 800-160 MG, TAKE 1 TABLET BY MOUTH ON MONDAY, WEDNESDAY AND FRIDAY
     Route: 048
     Dates: start: 20150205
  8. FOLIC ACID. [Concomitant]
     Active Substance: FOLIC ACID
     Indication: ANAEMIA
     Route: 048
     Dates: start: 20140811
  9. FLOMAX [Concomitant]
     Active Substance: TAMSULOSIN HYDROCHLORIDE
     Indication: BENIGN PROSTATIC HYPERPLASIA
     Route: 048
  10. IMBRUVICA [Suspect]
     Active Substance: IBRUTINIB
     Indication: CHRONIC LYMPHOCYTIC LEUKAEMIA
     Route: 065
     Dates: start: 201709
  11. BACTRIM [Concomitant]
     Active Substance: SULFAMETHOXAZOLE\TRIMETHOPRIM
     Indication: HYPOGAMMAGLOBULINAEMIA
     Dosage: 800-160 MG, TAKE 1 TABLET BY MOUTH ON MONDAY, WEDNESDAY AND FRIDAY
     Route: 048
     Dates: start: 20150205
  12. COMPAZINE [Concomitant]
     Active Substance: PROCHLORPERAZINE MALEATE
     Indication: NAUSEA
     Dosage: TAKE 1 TABLET EVERY 4 TO 6 HOUR AS NEEDED FOR
     Route: 048
     Dates: start: 20140825
  13. GAMUNEX-C [Concomitant]
     Active Substance: HUMAN IMMUNOGLOBULIN G
     Indication: CHRONIC LYMPHOCYTIC LEUKAEMIA
     Dosage: 10% INFUSE 45 GM EVERY 4 WEEKS
  14. PROCHLORPERAZINE MALEATE. [Concomitant]
     Active Substance: PROCHLORPERAZINE MALEATE
     Indication: CHRONIC LYMPHOCYTIC LEUKAEMIA
     Dosage: 10 MG, (1 TABLET EVERY 4-6 HOURS AS NEEDED FOR NAUSEA)
     Route: 048
     Dates: start: 20170327
  15. ALLOPURINOL. [Concomitant]
     Active Substance: ALLOPURINOL
     Indication: NEUTROPENIA
     Route: 048
     Dates: start: 20170315
  16. BACTRIM [Concomitant]
     Active Substance: SULFAMETHOXAZOLE\TRIMETHOPRIM
     Indication: NEUTROPENIA
     Dosage: 800-160 MG, TAKE 1 TABLET BY MOUTH ON MONDAY, WEDNESDAY AND FRIDAY
     Route: 048
     Dates: start: 20150205
  17. HYDROCORTISONE. [Concomitant]
     Active Substance: HYDROCORTISONE
     Indication: RASH
     Dosage: 2.5 %, APPLY TO AFFECTED AREA TWICE DAILY AS DIRECTED
     Dates: start: 20170613
  18. PROCHLORPERAZINE MALEATE. [Concomitant]
     Active Substance: PROCHLORPERAZINE MALEATE
     Indication: NAUSEA
     Dosage: 10 MG, (1 TABLET EVERY 4-6 HOURS AS NEEDED FOR NAUSEA)
     Route: 048
     Dates: start: 20170327
  19. BACTRIM [Concomitant]
     Active Substance: SULFAMETHOXAZOLE\TRIMETHOPRIM
     Indication: PYREXIA
     Dosage: 800-160 MG, TAKE 1 TABLET BY MOUTH ON MONDAY, WEDNESDAY AND FRIDAY
     Route: 048
     Dates: start: 20150205
  20. ATIVAN [Concomitant]
     Active Substance: LORAZEPAM
     Indication: ANXIETY
     Dosage: 0.5 MG, EVERY 6 HOURS PRN
     Route: 048
     Dates: start: 20170315
  21. FINASTERIDE. [Concomitant]
     Active Substance: FINASTERIDE
     Indication: HYPERTENSION
     Route: 048
     Dates: start: 20140214
  22. IMBRUVICA [Suspect]
     Active Substance: IBRUTINIB
     Indication: CHRONIC LYMPHOCYTIC LEUKAEMIA
     Route: 065
     Dates: start: 20170323, end: 201709
  23. ALLOPURINOL. [Concomitant]
     Active Substance: ALLOPURINOL
     Indication: ANAEMIA
     Route: 048
     Dates: start: 20170315
  24. FISH OIL W/TOCOPHEROL [Concomitant]
     Dosage: 2 CAPSULE DAILY
  25. COMPAZINE [Concomitant]
     Active Substance: PROCHLORPERAZINE MALEATE
     Indication: CHRONIC LYMPHOCYTIC LEUKAEMIA
     Dosage: TAKE 1 TABLET EVERY 4 TO 6 HOUR AS NEEDED FOR
     Route: 048
     Dates: start: 20140825
  26. COMPAZINE [Concomitant]
     Active Substance: PROCHLORPERAZINE MALEATE
     Indication: ANAEMIA
     Dosage: TAKE 1 TABLET EVERY 4 TO 6 HOUR AS NEEDED FOR
     Route: 048
     Dates: start: 20140825
  27. CYANOCOBALAMIN. [Concomitant]
     Active Substance: CYANOCOBALAMIN
     Indication: ANAEMIA
     Dosage: 1000 MCG, UNK
     Route: 048
     Dates: start: 20140811

REACTIONS (2)
  - Off label use [Unknown]
  - Product use issue [Unknown]

NARRATIVE: CASE EVENT DATE: 201709
